FAERS Safety Report 4546776-4 (Version None)
Quarter: 2005Q1

REPORT INFORMATION
  Report Type: 
  Country: None (occurrence: None)
  Receive Date: 20050105
  Receipt Date: 20041228
  Transmission Date: 20050727
  Serious: Yes (Death, Hospitalization)
  Sender: FDA-Public Use
  Company Number: 200413442GDS

PATIENT
  Age: 89 Year
  Sex: Male

DRUGS (18)
  1. ASPIRIN [Suspect]
     Dosage: 100 MG, QD, ORAL
     Route: 048
  2. PREDNISONE [Suspect]
     Dosage: 5 MG, TID, ORAL
     Route: 048
     Dates: end: 20041119
  3. MAGNESIUM DIASPORAL [Concomitant]
  4. CORVATON [Concomitant]
  5. BELOC ZOK [Concomitant]
  6. ZURCAL [Concomitant]
  7. BLOPRESS [Concomitant]
  8. DIAMICRON [Concomitant]
  9. GLUCONORMIN (METFORMIN) [Concomitant]
  10. PRACTO-CLYSS [Concomitant]
  11. RUDOLAC [Concomitant]
  12. EPREX [Concomitant]
  13. ENOXAPARIN SODIUM [Concomitant]
  14. MORPHIN HCL [Concomitant]
  15. AUGMENTIN [Concomitant]
  16. TOREM [Concomitant]
  17. DISTRANEURIN [Concomitant]
  18. NITRODERM [Concomitant]

REACTIONS (10)
  - ACUTE ABDOMEN [None]
  - ARTHRITIS [None]
  - DECUBITUS ULCER [None]
  - DIARRHOEA [None]
  - DISEASE RECURRENCE [None]
  - ILEAL PERFORATION [None]
  - OEDEMA PERIPHERAL [None]
  - PERITONITIS [None]
  - PLEURAL EFFUSION [None]
  - POST PROCEDURAL COMPLICATION [None]
